FAERS Safety Report 5578049-5 (Version None)
Quarter: 2007Q4

REPORT INFORMATION
  Report Type: 
  Country: None (occurrence: None)
  Receive Date: 20071231
  Receipt Date: 20071219
  Transmission Date: 20080405
  Serious: Yes (Other)
  Sender: FDA-Public Use
  Company Number: US-ROCHE-534481

PATIENT
  Age: 70 Year
  Sex: Male

DRUGS (4)
  1. BONIVA [Suspect]
     Indication: OSTEOPOROSIS
     Route: 048
  2. MORPHINE SULFATE [Concomitant]
  3. ALTACE [Concomitant]
  4. AMIODARONE HCL [Concomitant]

REACTIONS (2)
  - JAW DISORDER [None]
  - LOOSE TOOTH [None]
